FAERS Safety Report 9842638 (Version 1)
Quarter: 2013Q4

REPORT INFORMATION
  Report Type: Spontaneous
  Country: US (occurrence: None)
  Receive Date: 20131223
  Receipt Date: 20131223
  Transmission Date: 20140711
  Serious: No
  Sender: FDA-Public Use
  Company Number: 219014LEO

PATIENT
  Age: 59 Year
  Sex: Male

DRUGS (1)
  1. PICATO (0.015%, GEL) [Suspect]
     Indication: PRECANCEROUS CELLS PRESENT
     Dates: start: 20120914, end: 20120916

REACTIONS (3)
  - Erythema [None]
  - Skin exfoliation [None]
  - Drug administered at inappropriate site [None]
